FAERS Safety Report 6150763-2 (Version None)
Quarter: 2009Q2

REPORT INFORMATION
  Report Type: 
  Country: None (occurrence: None)
  Receive Date: 20090409
  Receipt Date: 20090403
  Transmission Date: 20091009
  Serious: Yes (Death)
  Sender: FDA-Public Use
  Company Number: US-GILEAD-2009-0021319

PATIENT
  Sex: Female
  Weight: 68.1 kg

DRUGS (8)
  1. LETAIRIS [Suspect]
     Indication: PULMONARY ARTERIAL HYPERTENSION
     Route: 048
     Dates: start: 20081108, end: 20090324
  2. VERAPAMIL [Concomitant]
  3. HYDRALAZINE HCL [Concomitant]
  4. LASIX [Concomitant]
  5. OXYGEN [Concomitant]
  6. PREDNISONE TAB [Concomitant]
  7. POTASSIUM CHLORIDE [Concomitant]
  8. SLOW-MAG [Concomitant]

REACTIONS (1)
  - DEATH [None]
